FAERS Safety Report 14248677 (Version 1)
Quarter: 2017Q4

REPORT INFORMATION
  Report Type: Report from Study
  Country: FR (occurrence: FR)
  Receive Date: 20171204
  Receipt Date: 20171204
  Transmission Date: 20180321
  Serious: Yes (Death)
  Sender: FDA-Public Use
  Company Number: FR-SEATTLE GENETICS-2017SGN01030

PATIENT
  Age: 27 Year
  Sex: Male

DRUGS (5)
  1. CYCLOPHOSPHAMIDE. [Suspect]
     Active Substance: CYCLOPHOSPHAMIDE
     Indication: PRODUCT USED FOR UNKNOWN INDICATION
     Dosage: 3060 MG, UNK
     Route: 042
     Dates: start: 20170723, end: 20170725
  2. THIOTEPA. [Suspect]
     Active Substance: THIOTEPA
     Indication: PRODUCT USED FOR UNKNOWN INDICATION
     Dosage: 310 MG, UNK
     Route: 042
     Dates: start: 20170714, end: 20170714
  3. BRENTUXIMAB VEDOTIN [Suspect]
     Active Substance: BRENTUXIMAB VEDOTIN
     Indication: HODGKIN^S DISEASE
     Dosage: 110 MG, UNK
     Route: 042
     Dates: start: 20170303, end: 20170327
  4. BUSULFAN. [Suspect]
     Active Substance: BUSULFAN
     Indication: PRODUCT USED FOR UNKNOWN INDICATION
     Dosage: 198 MG, UNK
     Route: 042
     Dates: start: 20170716, end: 20170717
  5. FLUDARABINE [Suspect]
     Active Substance: FLUDARABINE PHOSPHATE
     Indication: PRODUCT USED FOR UNKNOWN INDICATION
     Dosage: 85 MG, UNK
     Route: 042
     Dates: start: 20170716, end: 20170718

REACTIONS (2)
  - Off label use [Unknown]
  - Myocarditis [Fatal]

NARRATIVE: CASE EVENT DATE: 20170727
